FAERS Safety Report 5453640-5 (Version None)
Quarter: 2007Q3

REPORT INFORMATION
  Report Type: 
  Country: None (occurrence: None)
  Receive Date: 20070917
  Receipt Date: 20070905
  Transmission Date: 20080115
  Serious: Yes (Life-Threatening, Hospitalization)
  Sender: FDA-Public Use
  Company Number: PHEH2007US12169

PATIENT
  Age: 45 Year
  Sex: Male

DRUGS (7)
  1. CYCLOSPORINE [Suspect]
     Indication: RENAL TRANSPLANT
     Dosage: 550 MG, UNK
     Route: 048
     Dates: start: 20060924
  2. CELLCEPT [Suspect]
     Indication: RENAL TRANSPLANT
     Dosage: 2000 MG, QD
     Route: 048
     Dates: start: 20060923, end: 20070622
  3. CELLCEPT [Suspect]
     Dosage: 500 MG, BID
  4. VITAMIN CAP [Concomitant]
     Route: 048
     Dates: start: 20060927
  5. ELAVIL [Concomitant]
     Route: 048
     Dates: start: 20060927
  6. ZOLOFT [Concomitant]
     Dates: start: 20060927
  7. PREDNISONE [Suspect]
     Dosage: 10 MG, UNK
     Route: 048
     Dates: start: 20060925

REACTIONS (20)
  - ACIDOSIS [None]
  - BLOOD CREATININE INCREASED [None]
  - BRONCHIAL SECRETION RETENTION [None]
  - CARDIAC ARREST [None]
  - CRYPTOGENIC ORGANISING PNEUMONIA [None]
  - DECUBITUS ULCER [None]
  - DYSPNOEA [None]
  - HAEMODIALYSIS [None]
  - HYPERKALAEMIA [None]
  - HYPOXIA [None]
  - INTUBATION [None]
  - MALAISE [None]
  - MULTI-ORGAN FAILURE [None]
  - OEDEMA PERIPHERAL [None]
  - PCO2 INCREASED [None]
  - RENAL FAILURE ACUTE [None]
  - RESPIRATORY FAILURE [None]
  - SEPSIS [None]
  - SHOCK [None]
  - TRACHEOSTOMY [None]
